FAERS Safety Report 5704156-X (Version None)
Quarter: 2008Q2

REPORT INFORMATION
  Report Type: 
  Country: None (occurrence: None)
  Receive Date: 20080414
  Receipt Date: 20080414
  Transmission Date: 20081010
  Serious: Yes (Life-Threatening)
  Sender: FDA-Public Use
  Company Number: None

PATIENT
  Age: 47 Year
  Sex: Female

DRUGS (3)
  1. HEPARIN [Suspect]
     Indication: HAEMODIALYSIS
     Dosage: IV
     Route: 042
     Dates: start: 20080106
  2. HEPARIN [Suspect]
     Indication: HAEMODIALYSIS
     Dosage: IV
     Route: 042
     Dates: start: 20080107
  3. HEPARIN [Suspect]
     Indication: HAEMODIALYSIS
     Dosage: IV
     Route: 042
     Dates: start: 20080113

REACTIONS (9)
  - ADVERSE DRUG REACTION [None]
  - ANXIETY [None]
  - CHEST DISCOMFORT [None]
  - DYSPNOEA [None]
  - PHARMACEUTICAL PRODUCT COMPLAINT [None]
  - PRURITUS [None]
  - SKIN BURNING SENSATION [None]
  - SKIN CANCER [None]
  - SKIN LESION [None]
